FAERS Safety Report 5682611-9 (Version None)
Quarter: 2008Q1

REPORT INFORMATION
  Report Type: 
  Country: None (occurrence: None)
  Receive Date: 20080327
  Receipt Date: 20080111
  Transmission Date: 20080703
  Serious: No
  Sender: FDA-Public Use
  Company Number: US-BRISTOL-MYERS SQUIBB COMPANY-14032619

PATIENT
  Age: 57 Year
  Sex: Female

DRUGS (4)
  1. ORENCIA [Suspect]
     Indication: RHEUMATOID ARTHRITIS
     Dosage: 2 VIALS OF 250MG;STOPPED ON OCT07;RESTARTED ON OCT-07
     Route: 042
     Dates: start: 20070701
  2. PRILOSEC [Concomitant]
  3. NEXIUM [Concomitant]
  4. ACIPHEX [Concomitant]
     Dosage: STARTED 1-2 YEARS AGO,STOPPED 1 WK AGO.

REACTIONS (5)
  - CONSTIPATION [None]
  - INFECTION [None]
  - ORAL PAIN [None]
  - PHARYNGOLARYNGEAL PAIN [None]
  - THIRST [None]
